FAERS Safety Report 8024572-3 (Version None)
Quarter: 2011Q4

REPORT INFORMATION
  Report Type: 
  Country: None (occurrence: None)
  Receive Date: 20111130
  Receipt Date: 20110426
  Transmission Date: 20120403
  Serious: Yes (Other)
  Sender: FDA-Public Use
  Company Number: 325798

PATIENT
  Age: 16 Year
  Sex: Male
  Weight: 62.1 kg

DRUGS (2)
  1. NOVOLOG [Suspect]
     Indication: TYPE 1 DIABETES MELLITUS
     Dosage: 20 IU, SUBCUTANEOUS ; 40 IU
     Route: 058
     Dates: start: 20081228
  2. HUMALOG [Concomitant]

REACTIONS (2)
  - DIABETIC KETOACIDOSIS [None]
  - DRUG INEFFECTIVE [None]
